FAERS Safety Report 12673592 (Version 1)
Quarter: 2016Q3

REPORT INFORMATION
  Report Type: Spontaneous
  Country: PT (occurrence: PT)
  Receive Date: 20160822
  Receipt Date: 20160822
  Transmission Date: 20161109
  Serious: Yes (Other)
  Sender: FDA-Public Use
  Company Number: PT-009507513-1608PRT008419

PATIENT
  Age: 20 Year
  Sex: Female

DRUGS (2)
  1. IMPLANON [Suspect]
     Active Substance: ETONOGESTREL
     Dosage: ON HER LEFT ARM
     Route: 059
     Dates: start: 201408
  2. IMPLANON [Suspect]
     Active Substance: ETONOGESTREL
     Dosage: UNK
     Route: 059

REACTIONS (4)
  - Menorrhagia [Unknown]
  - Migration of implanted drug [Unknown]
  - Menstruation irregular [Unknown]
  - Implant site pain [Unknown]

NARRATIVE: CASE EVENT DATE: 2016
